FAERS Safety Report 19646440 (Version 1)
Quarter: 2021Q3

REPORT INFORMATION
  Report Type: Spontaneous
  Country: US (occurrence: US)
  Receive Date: 20210731
  Receipt Date: 20210731
  Transmission Date: 20211014
  Serious: Yes (Hospitalization)
  Sender: FDA-Public Use
  Company Number: None

PATIENT
  Age: 74 Year
  Sex: Male
  Weight: 74.8 kg

DRUGS (2)
  1. BENDAMUSTINE HYDROCHLORIDE (138783) [Suspect]
     Active Substance: BENDAMUSTINE HYDROCHLORIDE
     Indication: DRUG THERAPY
     Dates: end: 20160205
  2. RITUXIMAB (MOAB C2B8 ANTI CD20, CHIMERIC) [Suspect]
     Active Substance: RITUXIMAB
     Indication: DRUG THERAPY
     Dates: end: 20180201

REACTIONS (1)
  - Keratoacanthoma [None]

NARRATIVE: CASE EVENT DATE: 20210518
